FAERS Safety Report 6786972-9 (Version None)
Quarter: 2010Q2

REPORT INFORMATION
  Report Type: 
  Country: None (occurrence: None)
  Receive Date: 20100623
  Receipt Date: 20100611
  Transmission Date: 20101027
  Serious: Yes (Other)
  Sender: FDA-Public Use
  Company Number: US-JNJCH-2010012556

PATIENT
  Age: 11 Year
  Sex: Male
  Weight: 38.6 kg

DRUGS (2)
  1. CHILDREN'S ZYRTEC ALLERGY [Suspect]
     Indication: HEADACHE
     Dosage: TEXT:4ML ONCE A DAY
     Route: 048
     Dates: start: 20100325, end: 20100329
  2. TYLENOL [Suspect]
     Indication: PYREXIA
     Dosage: TEXT:UNSPECIFIED
     Route: 048

REACTIONS (10)
  - ARTHRALGIA [None]
  - DYSPNOEA [None]
  - EYE SWELLING [None]
  - GAIT DISTURBANCE [None]
  - MYDRIASIS [None]
  - OFF LABEL USE [None]
  - PALPITATIONS [None]
  - PRODUCT QUALITY ISSUE [None]
  - RASH [None]
  - SKIN EXFOLIATION [None]
